FAERS Safety Report 7326682-2 (Version None)
Quarter: 2011Q1

REPORT INFORMATION
  Report Type: 
  Country: None (occurrence: None)
  Receive Date: 20110223
  Receipt Date: 20110211
  Transmission Date: 20110831
  Serious: Yes (Death)
  Sender: FDA-Public Use
  Company Number: UTC-003922

PATIENT
  Age: 54 Year
  Sex: Female
  Weight: 54.09 kg

DRUGS (1)
  1. TYVASO [Suspect]
     Indication: PULMONARY ARTERIAL HYPERTENSION
     Dosage: INHALATION
     Route: 055
     Dates: start: 20091111

REACTIONS (1)
  - DEATH [None]
